FAERS Safety Report 5450802-8 (Version None)
Quarter: 2007Q3

REPORT INFORMATION
  Report Type: 
  Country: None (occurrence: None)
  Receive Date: 20070803
  Receipt Date: 20070309
  Transmission Date: 20080115
  Serious: Yes (Hospitalization)
  Sender: FDA-Public Use
  Company Number: US-JNJFOC-20070302921

PATIENT

DRUGS (1)
  1. TYLENOL [Suspect]
     Indication: PYREXIA

REACTIONS (1)
  - DRUG INEFFECTIVE [None]
